FAERS Safety Report 11784915 (Version 1)
Quarter: 2015Q4

REPORT INFORMATION
  Report Type: Spontaneous
  Country: US (occurrence: US)
  Receive Date: 20151130
  Receipt Date: 20151130
  Transmission Date: 20160305
  Serious: No
  Sender: FDA-Public Use
  Company Number: US-009507513-1511USA013669

PATIENT
  Age: 85 Year
  Sex: Female
  Weight: 68.27 kg

DRUGS (4)
  1. DEXBROMPHENIRAMINE MALEATE (+) PSEUDOEPHEDRINE SULFATE (+) ACETAMINOPH [Suspect]
     Active Substance: ACETAMINOPHEN\DEXBROMPHENIRAMINE MALEATE\PSEUDOEPHEDRINE SULFATE
     Indication: PRODUCT USED FOR UNKNOWN INDICATION
     Dosage: UNK UNK, PRN
     Route: 048
     Dates: start: 20151122, end: 20151123
  2. TELMISARTAN. [Concomitant]
     Active Substance: TELMISARTAN
     Dosage: UNK
  3. COREG [Concomitant]
     Active Substance: CARVEDILOL
     Dosage: UNK
  4. PRAVACHOL [Concomitant]
     Active Substance: PRAVASTATIN SODIUM
     Dosage: UNK

REACTIONS (1)
  - Expired product administered [Unknown]

NARRATIVE: CASE EVENT DATE: 20151122
